FAERS Safety Report 8585557-1 (Version None)
Quarter: 2012Q3

REPORT INFORMATION
  Report Type: 
  Country: None (occurrence: None)
  Receive Date: 20120810
  Receipt Date: 20120802
  Transmission Date: 20120928
  Serious: Yes (Other)
  Sender: FDA-Public Use
  Company Number: US-JNJFOC-20120803048

PATIENT
  Sex: Male
  Weight: 95.26 kg

DRUGS (13)
  1. PREDNISONE TAB [Suspect]
     Route: 048
  2. PREDNISONE TAB [Suspect]
     Route: 048
  3. PREDNISONE TAB [Suspect]
     Route: 048
  4. PREDNISONE TAB [Suspect]
     Route: 048
     Dates: start: 20120701, end: 20120701
  5. PREDNISONE TAB [Suspect]
     Route: 048
  6. METHOTREXATE [Concomitant]
     Indication: ARTHRITIS
     Route: 048
  7. PREDNISONE TAB [Suspect]
     Route: 048
     Dates: start: 20120701, end: 20120701
  8. PREDNISONE TAB [Suspect]
     Route: 048
  9. FOLIC ACID [Concomitant]
     Route: 048
     Dates: start: 20100101
  10. PREDNISONE TAB [Suspect]
     Indication: ARTHRITIS
     Route: 048
     Dates: start: 20100101
  11. PREDNISONE TAB [Suspect]
     Route: 048
  12. REMICADE [Suspect]
     Indication: RHEUMATOID ARTHRITIS
     Route: 042
     Dates: start: 20120501
  13. PREDNISONE TAB [Suspect]
     Indication: RHEUMATOID ARTHRITIS
     Route: 048
     Dates: start: 20100101

REACTIONS (3)
  - INSOMNIA [None]
  - JOINT SWELLING [None]
  - ARTHRALGIA [None]
